FAERS Safety Report 7441678-8 (Version None)
Quarter: 2011Q2

REPORT INFORMATION
  Report Type: 
  Country: None (occurrence: None)
  Receive Date: 20110425
  Receipt Date: 20110425
  Transmission Date: 20111010
  Serious: No
  Sender: FDA-Public Use
  Company Number: None

PATIENT
  Age: 66 Year
  Sex: Female
  Weight: 63.5036 kg

DRUGS (1)
  1. APRACLONIDINE HYDROCHLORIDE [Suspect]
     Dates: start: 20070720, end: 20070720

REACTIONS (4)
  - SCHAMBERG'S DISEASE [None]
  - ERYTHEMA [None]
  - SKIN DISCOLOURATION [None]
  - PURPURA [None]
